FAERS Safety Report 5423080-3 (Version None)
Quarter: 2007Q3

REPORT INFORMATION
  Report Type: 
  Country: None (occurrence: None)
  Receive Date: 20070821
  Receipt Date: 20070808
  Transmission Date: 20080115
  Serious: Yes (Death, Hospitalization)
  Sender: FDA-Public Use
  Company Number: 2007EN000194

PATIENT
  Age: 80 Year
  Sex: Male

DRUGS (18)
  1. OPANA ER [Suspect]
     Indication: PAIN
     Dosage: 40 MG;BID;  10 MG; QD;  20 MG; BID; 10 MG;BID;
     Dates: start: 20060905, end: 20061004
  2. OPANA ER [Suspect]
     Indication: PAIN
     Dosage: 40 MG;BID;  10 MG; QD;  20 MG; BID; 10 MG;BID;
     Dates: start: 20070507, end: 20070101
  3. OPANA ER [Suspect]
     Indication: PAIN
     Dosage: 40 MG;BID;  10 MG; QD;  20 MG; BID; 10 MG;BID;
     Dates: start: 20061004, end: 20070507
  4. OPANA ER [Suspect]
     Indication: PAIN
     Dosage: 40 MG;BID;  10 MG; QD;  20 MG; BID; 10 MG;BID;
     Dates: start: 20061228, end: 20070507
  5. PROSCAR [Concomitant]
  6. AMBIEN [Concomitant]
  7. TRICOR [Concomitant]
  8. PREVACID [Concomitant]
  9. PLAVIX [Concomitant]
  10. LEXAPRO [Concomitant]
  11. CORDARONE [Concomitant]
  12. AVALIDE [Concomitant]
  13. LORATADINE [Concomitant]
  14. IRON [Concomitant]
  15. ZITHROMAX [Concomitant]
  16. NEXIUM [Concomitant]
  17. PEPTO-BISMOL [Concomitant]
  18. STOOL SOFTENER [Concomitant]

REACTIONS (4)
  - ANAEMIA [None]
  - COMPLETED SUICIDE [None]
  - EYE INJURY [None]
  - GUN SHOT WOUND [None]
